FAERS Safety Report 18636957 (Version 4)
Quarter: 2021Q1

REPORT INFORMATION
  Report Type: Spontaneous
  Country: US (occurrence: US)
  Receive Date: 20201218
  Receipt Date: 20210211
  Transmission Date: 20210419
  Serious: Yes (Other)
  Sender: FDA-Public Use
  Company Number: US-ALLERGAN-2049014US

PATIENT
  Sex: Female
  Weight: 63.96 kg

DRUGS (1)
  1. RESTASIS [Suspect]
     Active Substance: CYCLOSPORINE
     Indication: DRY EYE
     Dosage: 2 GTT, BID
     Route: 047
     Dates: start: 2008

REACTIONS (10)
  - Cataract [Unknown]
  - Macular hole [Unknown]
  - Glaucoma [Unknown]
  - Drug tolerance [Unknown]
  - Atrial fibrillation [Unknown]
  - Post procedural inflammation [Unknown]
  - Hypertension [Unknown]
  - Intraocular pressure increased [Unknown]
  - Lacrimation increased [Not Recovered/Not Resolved]
  - Macular oedema [Unknown]
